FAERS Safety Report 7198568-8 (Version None)
Quarter: 2010Q4

REPORT INFORMATION
  Report Type: 
  Country: None (occurrence: None)
  Receive Date: 20101227
  Receipt Date: 20101222
  Transmission Date: 20110411
  Serious: Yes (Death, Other)
  Sender: FDA-Public Use
  Company Number: PHHY2010JP74588

PATIENT
  Age: 18 Year
  Sex: Female

DRUGS (16)
  1. SANDIMMUNE [Suspect]
     Indication: STEM CELL TRANSPLANT
     Dosage: 3MG/KG
     Route: 041
  2. SANDIMMUNE [Suspect]
     Indication: CORD BLOOD TRANSPLANT THERAPY
  3. MYCOPHENOLATE MOFETIL [Concomitant]
     Indication: CORD BLOOD TRANSPLANT THERAPY
     Dosage: 15MG/KG
     Route: 048
  4. PREDNISOLONE [Concomitant]
     Indication: CORD BLOOD TRANSPLANT THERAPY
     Dosage: 2MG/KG
  5. PREDNISOLONE [Concomitant]
     Dosage: UNK
  6. FLUDARABINE PHOSPHATE [Concomitant]
     Indication: CORD BLOOD TRANSPLANT THERAPY
     Dosage: 25MG/M2
  7. BUSULFAN [Concomitant]
     Indication: CORD BLOOD TRANSPLANT THERAPY
     Dosage: 3.2MG/M2
  8. MELPHALAN [Concomitant]
     Indication: STEM CELL TRANSPLANT
     Dosage: 90MG/M2
  9. MELPHALAN [Concomitant]
     Indication: CORD BLOOD TRANSPLANT THERAPY
     Dosage: 70MG/M2
  10. CARBOPLATIN [Concomitant]
     Indication: STEM CELL TRANSPLANT
     Dosage: 400MG/M2
  11. ETOPOSIDE [Concomitant]
     Indication: EWING'S SARCOMA
     Dosage: 100MG/M2
  12. ETOPOSIDE [Concomitant]
     Indication: STEM CELL TRANSPLANT
     Dosage: 15MG/KG
  13. IFOSFAMIDE [Concomitant]
     Indication: EWING'S SARCOMA
     Dosage: 2000MG/M2
  14. VINCRISTINE SULFATE [Concomitant]
     Indication: EWING'S SARCOMA
     Dosage: 1.5MG/M2
  15. DOXORUBICIN HYDROCHLORIDE [Concomitant]
     Indication: EWING'S SARCOMA
     Dosage: 75MG/M2
  16. CYCLOPHOSPHAMIDE [Concomitant]
     Indication: EWING'S SARCOMA
     Dosage: 1200MG/M2

REACTIONS (12)
  - ABDOMINAL DISTENSION [None]
  - ACUTE RESPIRATORY FAILURE [None]
  - ALANINE AMINOTRANSFERASE INCREASED [None]
  - ASPARTATE AMINOTRANSFERASE INCREASED [None]
  - BLOOD BILIRUBIN INCREASED [None]
  - CHRONIC GRAFT VERSUS HOST DISEASE [None]
  - DIARRHOEA [None]
  - FIBRIN DEGRADATION PRODUCTS INCREASED [None]
  - INTERSTITIAL LUNG DISEASE [None]
  - MECHANICAL VENTILATION [None]
  - OEDEMA PERIPHERAL [None]
  - PYREXIA [None]
